FAERS Safety Report 5698549-7 (Version None)
Quarter: 2008Q2

REPORT INFORMATION
  Report Type: 
  Country: None (occurrence: None)
  Receive Date: 20080408
  Receipt Date: 20060814
  Transmission Date: 20081010
  Serious: No
  Sender: FDA-Public Use
  Company Number: US-BAYER-US-2006-023848

PATIENT
  Age: 62 Year
  Sex: Female

DRUGS (4)
  1. CLIMARA [Suspect]
     Indication: HORMONE REPLACEMENT THERAPY
     Route: 062
     Dates: start: 20030101
  2. DIOVAN [Concomitant]
     Indication: HYPERTENSION
     Dosage: UNIT DOSE: 160 MG
  3. ALBUTEROL [Concomitant]
     Indication: ASTHMA
  4. DIAZEPAM [Concomitant]
     Indication: ANXIETY
     Dosage: UNIT DOSE: 1 MG

REACTIONS (8)
  - ABDOMINAL DISTENSION [None]
  - CONSTIPATION [None]
  - DIZZINESS [None]
  - FATIGUE [None]
  - FEELING ABNORMAL [None]
  - HEADACHE [None]
  - PHARMACEUTICAL PRODUCT COMPLAINT [None]
  - VISUAL DISTURBANCE [None]
